FAERS Safety Report 20407487 (Version 3)
Quarter: 2022Q1

REPORT INFORMATION
  Report Type: Spontaneous
  Country: PL (occurrence: PL)
  Receive Date: 20220131
  Receipt Date: 20220211
  Transmission Date: 20220424
  Serious: Yes (Hospitalization)
  Sender: FDA-Public Use
  Company Number: PL-JNJFOC-20220144352

PATIENT
  Age: 25 Year
  Sex: Male

DRUGS (10)
  1. KETOCONAZOLE [Suspect]
     Active Substance: KETOCONAZOLE
     Indication: Trichophytosis
     Dosage: 100 MG
     Route: 048
  2. KETOCONAZOLE [Suspect]
     Active Substance: KETOCONAZOLE
     Indication: Tinea barbae
  3. FLUCONAZOLE [Suspect]
     Active Substance: FLUCONAZOLE
     Indication: Trichophytosis
     Route: 042
     Dates: start: 200910
  4. AMOXICILLIN\CLAVULANIC ACID [Suspect]
     Active Substance: AMOXICILLIN\CLAVULANIC ACID
     Indication: Trichophytosis
     Dosage: STARTED FOR 8 DAYS
     Route: 042
     Dates: start: 200910
  5. CEFTRIAXONE [Suspect]
     Active Substance: CEFTRIAXONE
     Indication: Trichophytosis
     Dosage: 2 GRAM DAILY
     Route: 042
     Dates: start: 200910
  6. CEFTRIAXONE [Suspect]
     Active Substance: CEFTRIAXONE
     Indication: Tinea barbae
  7. VANCOMYCIN [Suspect]
     Active Substance: VANCOMYCIN
     Indication: Trichophytosis
     Dosage: STARTED 4 DAYS PRIOR TO ERYTHEMA NODOSUM
     Route: 065
     Dates: start: 200910
  8. VANCOMYCIN [Suspect]
     Active Substance: VANCOMYCIN
     Indication: Tinea barbae
  9. TERBINAFINE [Suspect]
     Active Substance: TERBINAFINE
     Indication: Trichophytosis
     Dosage: 250 MILLIGRAM DAILY; ACTION TAKEN: RECOMMENDED TO CONTINUE ORAL TERBINAFINE FOR 30 DAYS
     Route: 048
     Dates: start: 200910
  10. TERBINAFINE [Suspect]
     Active Substance: TERBINAFINE
     Indication: Tinea barbae

REACTIONS (5)
  - Arthritis [Recovering/Resolving]
  - Erythema nodosum [Recovering/Resolving]
  - Abdominal pain [Recovering/Resolving]
  - Dermatitis [Recovering/Resolving]
  - Drug ineffective [Unknown]

NARRATIVE: CASE EVENT DATE: 20091001
